FAERS Safety Report 8022076 (Version 5)
Quarter: 2013Q1

REPORT INFORMATION
  Report Type: Report from Study
  Country: JP (occurrence: JP)
  Receive Date: 20110705
  Receipt Date: 20130214
  Transmission Date: 20140127
  Serious: No
  Sender: FDA-Public Use
  Company Number: PHHY2011JP57196

PATIENT
  Age: 62 Year
  Sex: Female

DRUGS (10)
  1. AMN107 [Suspect]
     Indication: CHRONIC MYELOID LEUKAEMIA
     Dosage: 200 MG, DAILY
     Route: 048
     Dates: start: 20091015, end: 20091028
  2. AMN107 [Suspect]
     Dosage: 400 MG, DAILY
     Route: 048
     Dates: start: 20091029, end: 20091125
  3. AMN107 [Suspect]
     Dosage: 800 MG, UNK
     Route: 048
     Dates: start: 20091126, end: 20110223
  4. AMN107 [Suspect]
     Dosage: 600 MG
     Route: 048
     Dates: start: 20110224
  5. PREDONINE [Concomitant]
     Dosage: 10 MG,
     Dates: start: 20091015
  6. PREDONINE [Concomitant]
     Dosage: 5 MG,
  7. PREDONINE [Concomitant]
     Dosage: 25 MG,
     Route: 048
     Dates: end: 20091125
  8. ALESION [Concomitant]
     Dosage: 20 MG,
     Route: 048
     Dates: start: 20091015, end: 20091219
  9. SELBEX [Concomitant]
     Indication: GASTRITIS
     Dates: start: 20090528
  10. GASMOTIN [Concomitant]
     Indication: GASTRITIS
     Dates: start: 20090525

REACTIONS (1)
  - Hypertension [Not Recovered/Not Resolved]
